FAERS Safety Report 6206012-X (Version None)
Quarter: 2009Q2

REPORT INFORMATION
  Report Type: 
  Country: None (occurrence: None)
  Receive Date: 20090528
  Receipt Date: 20090521
  Transmission Date: 20091009
  Serious: Yes (Death)
  Sender: FDA-Public Use
  Company Number: GB-ELI_LILLY_AND_COMPANY-GB200905004177

PATIENT
  Age: 64 Year
  Sex: Male
  Weight: 138 kg

DRUGS (11)
  1. BYETTA [Suspect]
     Dosage: 10 UG, 2/D
     Route: 058
     Dates: start: 20090203
  2. BENDROFLUAZIDE [Concomitant]
     Dosage: 2.5 MG, DAILY (1/D)
     Route: 048
  3. CANDESARTAN [Concomitant]
     Dosage: UNK, UNKNOWN
     Route: 065
  4. CARVEDILOL [Concomitant]
     Dosage: UNK, UNKNOWN
     Route: 065
  5. CO-DYDRAMOL [Concomitant]
     Dosage: UNK, UNKNOWN
     Route: 065
  6. FLUVASTATIN [Concomitant]
     Dosage: UNK, UNKNOWN
     Route: 065
  7. FUROSEMIDE [Concomitant]
     Dosage: 40 MG, DAILY (1/D)
     Route: 048
  8. HUMAN INSULATARD [Concomitant]
     Dosage: 35 U, 2/D
     Route: 058
     Dates: start: 20060501
  9. METFORMIN HCL [Concomitant]
     Dosage: 500 MG, 3/D
     Route: 048
  10. OMEPRAZOLE [Concomitant]
     Dosage: UNK, UNKNOWN
     Route: 065
  11. WARFARIN SODIUM [Concomitant]
     Dosage: UNK, UNKNOWN
     Route: 065

REACTIONS (1)
  - SUDDEN DEATH [None]
